FAERS Safety Report 9542825 (Version 2)
Quarter: 2013Q4

REPORT INFORMATION
  Report Type: Spontaneous
  Country: US (occurrence: US)
  Receive Date: 20130923
  Receipt Date: 20131028
  Transmission Date: 20140711
  Serious: No
  Sender: FDA-Public Use
  Company Number: US-ROXANE LABORATORIES, INC.-2013-RO-01546RO

PATIENT
  Sex: Female

DRUGS (1)
  1. IRBESARTAN [Suspect]
     Indication: HYPERTENSION
     Dosage: 300 MG
     Route: 048

REACTIONS (2)
  - Retching [Not Recovered/Not Resolved]
  - Product quality issue [Not Recovered/Not Resolved]
